FAERS Safety Report 8034589-0 (Version None)
Quarter: 2012Q1

REPORT INFORMATION
  Report Type: 
  Country: None (occurrence: None)
  Receive Date: 20120110
  Receipt Date: 20111230
  Transmission Date: 20120608
  Serious: Yes (Hospitalization, Other)
  Sender: FDA-Public Use
  Company Number: US-ELI_LILLY_AND_COMPANY-US201112004178

PATIENT
  Sex: Male
  Weight: 84.807 kg

DRUGS (10)
  1. ASPIRIN                                 /USA/ [Concomitant]
     Indication: PROPHYLAXIS
     Dosage: 81 MG, QD
     Route: 048
  2. HYZAAR [Concomitant]
     Indication: HYPERTENSION
     Dosage: 1 DF, QD
     Route: 048
     Dates: start: 20000101
  3. CRESTOR [Concomitant]
     Indication: BLOOD CHOLESTEROL INCREASED
     Dosage: 10 MG, QD
     Route: 048
  4. LOSARTAN POTASSIUM [Concomitant]
     Indication: HYPERTENSION
     Dosage: UNK, UNKNOWN
     Route: 048
     Dates: start: 20110101, end: 20111130
  5. BYETTA [Suspect]
     Dosage: 5 UG, BID
     Route: 058
     Dates: end: 20111021
  6. PRILOSEC [Concomitant]
     Indication: GASTROOESOPHAGEAL REFLUX DISEASE
     Dosage: 40 MG, QD
     Route: 048
  7. VIAGRA [Concomitant]
     Indication: SEXUAL DYSFUNCTION
     Dosage: UNK, PRN
     Route: 048
  8. TOPROL-XL [Concomitant]
     Indication: HYPERTENSION
     Dosage: UNK, UNKNOWN
     Route: 048
     Dates: start: 20111201, end: 20111220
  9. BYETTA [Suspect]
     Indication: TYPE 2 DIABETES MELLITUS
     Dosage: 5 UG, QD
     Route: 058
     Dates: start: 20080301
  10. LOSARTAN POTASSIUM [Concomitant]
     Dosage: UNK, UNKNOWN
     Route: 048
     Dates: start: 20111221

REACTIONS (12)
  - MANTLE CELL LYMPHOMA [None]
  - LOCAL SWELLING [None]
  - DYSPHONIA [None]
  - UPPER RESPIRATORY TRACT IRRITATION [None]
  - PANCYTOPENIA [None]
  - RENAL FAILURE ACUTE [None]
  - METASTASES TO LIVER [None]
  - SWELLING FACE [None]
  - PROSTATIC SPECIFIC ANTIGEN INCREASED [None]
  - WEIGHT DECREASED [None]
  - METASTASES TO SPLEEN [None]
  - THYROID DISORDER [None]
